FAERS Safety Report 6749179-7 (Version None)
Quarter: 2010Q2

REPORT INFORMATION
  Report Type: 
  Country: None (occurrence: None)
  Receive Date: 20100601
  Receipt Date: 20100527
  Transmission Date: 20101027
  Serious: Yes (Hospitalization)
  Sender: FDA-Public Use
  Company Number: US-BAYER-201023896NA

PATIENT
  Age: 42 Year
  Sex: Female

DRUGS (1)
  1. BETASERON [Suspect]
     Indication: MULTIPLE SCLEROSIS
     Route: 058

REACTIONS (4)
  - BACK PAIN [None]
  - INJECTION SITE CELLULITIS [None]
  - INJECTION SITE SCAR [None]
  - URINARY TRACT INFECTION [None]
